FAERS Safety Report 4607843-X (Version None)
Quarter: 2005Q1

REPORT INFORMATION
  Report Type: 
  Country: None (occurrence: None)
  Receive Date: 20050310
  Receipt Date: 20050303
  Transmission Date: 20050727
  Serious: Yes (Death)
  Sender: FDA-Public Use
  Company Number: 200510429GDS

PATIENT
  Sex: Female

DRUGS (6)
  1. AVELOX [Suspect]
     Indication: PNEUMONIA
     Dosage: INTRAVENOUS
     Route: 042
  2. AVELOX [Suspect]
     Indication: PNEUMONIA
  3. TAMBOCOR [Concomitant]
  4. SERETIDE MITE [Concomitant]
  5. SALMETEROL [Concomitant]
  6. SPIRIVA [Concomitant]

REACTIONS (4)
  - CIRCULATORY COLLAPSE [None]
  - DRUG INTERACTION [None]
  - TORSADE DE POINTES [None]
  - VENTRICULAR FIBRILLATION [None]
